FAERS Safety Report 9063171 (Version 1)
Quarter: 2013Q1

REPORT INFORMATION
  Report Type: Report from Study
  Country: US (occurrence: US)
  Receive Date: 20130213
  Receipt Date: 20130213
  Transmission Date: 20140127
  Serious: Yes (Life-Threatening, Hospitalization)
  Sender: FDA-Public Use
  Company Number: US-009507513-0903USA04546

PATIENT
  Age: 68 Year
  Sex: Female
  Weight: 129 kg

DRUGS (7)
  1. ZETIA [Suspect]
     Dosage: 10 MG, QD
     Route: 048
  2. LOVASTATIN [Suspect]
     Dosage: 20 MG, QD
     Route: 048
  3. EXEMESTANE [Suspect]
     Indication: BREAST CANCER
     Dosage: 25 MG, QD
     Route: 048
     Dates: start: 20060914
  4. DETROL LA [Suspect]
     Dosage: 4 MG, QD
  5. CALCIUM CARBONATE [Suspect]
     Dosage: 1250 MG, BID
     Route: 048
  6. BAYER ASPIRIN [Concomitant]
     Dosage: 81 MG, QD
     Route: 048
  7. VITAMIN D (UNSPECIFIED) [Concomitant]
     Dosage: 400 IU, BID

REACTIONS (2)
  - Deep vein thrombosis [Recovering/Resolving]
  - Pulmonary embolism [Recovering/Resolving]
